FAERS Safety Report 9442780 (Version 1)
Quarter: 2013Q3

REPORT INFORMATION
  Report Type: Report from Study
  Country: US (occurrence: US)
  Receive Date: 20130806
  Receipt Date: 20130806
  Transmission Date: 20140515
  Serious: No
  Sender: FDA-Public Use
  Company Number: US-ABBOTT-12P-163-1016524-00

PATIENT
  Age: 57 Year
  Sex: Male

DRUGS (3)
  1. DEPAKOTE ER [Suspect]
     Indication: PRODUCT USED FOR UNKNOWN INDICATION
     Dates: end: 201211
  2. DEPAKOTE ER [Suspect]
     Dates: start: 201211, end: 201211
  3. DEPAKOTE ER [Suspect]
     Dates: start: 201211

REACTIONS (1)
  - Adverse drug reaction [Recovered/Resolved]
